FAERS Safety Report 14607672 (Version 1)
Quarter: 2018Q1

REPORT INFORMATION
  Report Type: Spontaneous
  Country: US (occurrence: US)
  Receive Date: 20180307
  Receipt Date: 20180307
  Transmission Date: 20180509
  Serious: Yes (Hospitalization, Other)
  Sender: FDA-Public Use
  Company Number: US-GLAXOSMITHKLINE-US2018GSK035896

PATIENT
  Sex: Male

DRUGS (2)
  1. INCRUSE ELLIPTA [Suspect]
     Active Substance: UMECLIDINIUM BROMIDE
     Indication: LUNG NEOPLASM MALIGNANT
     Dosage: UNK
     Dates: start: 201705
  2. BREO ELLIPTA [Suspect]
     Active Substance: FLUTICASONE FUROATE\VILANTEROL TRIFENATATE
     Indication: LUNG NEOPLASM MALIGNANT
     Dosage: UNK
     Dates: start: 201705

REACTIONS (7)
  - Product use in unapproved indication [Unknown]
  - Aggression [Unknown]
  - Oxygen saturation decreased [Unknown]
  - Ill-defined disorder [Unknown]
  - Hospitalisation [Unknown]
  - Radiotherapy [Unknown]
  - Transfusion [Unknown]

NARRATIVE: CASE EVENT DATE: 201705
